FAERS Safety Report 25955460 (Version 1)
Quarter: 2025Q4

REPORT INFORMATION
  Report Type: Spontaneous
  Country: IL (occurrence: IL)
  Receive Date: 20251024
  Receipt Date: 20251024
  Transmission Date: 20260118
  Serious: Yes (Hospitalization)
  Sender: BAXTER
  Company Number: IL-BAXTER-2025BAX022940

PATIENT
  Age: 50 Year
  Sex: Male

DRUGS (1)
  1. AMINO ACIDS\DEXTROSE\ELECTROLYTES NOS\SOYBEAN OIL [Suspect]
     Active Substance: AMINO ACIDS\DEXTROSE\ELECTROLYTES NOS\SOYBEAN OIL
     Indication: Parenteral nutrition
     Dosage: 2500 ML
     Route: 065
     Dates: start: 20250810

REACTIONS (4)
  - Blood pressure decreased [Unknown]
  - Inflammation [Unknown]
  - Pyrexia [Unknown]
  - Chills [Unknown]
